FAERS Safety Report 5133963-X (Version None)
Quarter: 2006Q4

REPORT INFORMATION
  Report Type: 
  Country: None (occurrence: None)
  Receive Date: 20061019
  Receipt Date: 20061010
  Transmission Date: 20070319
  Serious: Yes (Hospitalization)
  Sender: FDA-Public Use
  Company Number: 2006125807

PATIENT
  Age: 70 Year
  Sex: Male
  Weight: 90 kg

DRUGS (8)
  1. EXUBERA [Suspect]
     Indication: DIABETES MELLITUS NON-INSULIN-DEPENDENT
     Dosage: 90 I.U. (30 I.U., 3 IN 1 D), ORAL
     Route: 048
     Dates: start: 20060718
  2. ACETYLSALICYLIC ACID SRT [Concomitant]
  3. METOPROLOL SUCCINATE [Concomitant]
  4. ATACAND [Concomitant]
  5. NORVASC [Concomitant]
  6. PRAVASTATIN SODIUM [Concomitant]
  7. NEXIUM [Concomitant]
  8. INSPRA [Concomitant]

REACTIONS (2)
  - PHOBIA [None]
  - WRONG TECHNIQUE IN DRUG USAGE PROCESS [None]
